FAERS Safety Report 13288192 (Version 1)
Quarter: 2017Q1

REPORT INFORMATION
  Report Type: Spontaneous
  Country: US (occurrence: US)
  Receive Date: 20170302
  Receipt Date: 20170302
  Transmission Date: 20170428
  Serious: No
  Sender: FDA-Public Use
  Company Number: US-AMNEAL PHARMACEUTICALS-2017AMN00005

PATIENT
  Sex: Female

DRUGS (1)
  1. OMEGA-3-ACID ETHYL ESTERS. [Suspect]
     Active Substance: OMEGA-3-ACID ETHYL ESTERS
     Indication: BLOOD TRIGLYCERIDES ABNORMAL
     Dosage: 4 G, 1X/DAY

REACTIONS (4)
  - Product odour abnormal [Unknown]
  - Product substitution issue [Unknown]
  - Eructation [Unknown]
  - Abdominal discomfort [Unknown]
